FAERS Safety Report 23862589 (Version 3)
Quarter: 2025Q1

REPORT INFORMATION
  Report Type: Spontaneous
  Country: US (occurrence: US)
  Receive Date: 20240516
  Receipt Date: 20250120
  Transmission Date: 20250408
  Serious: Yes (Death, Hospitalization, Other)
  Sender: PFIZER
  Company Number: US-BRISTOL-MYERS SQUIBB COMPANY-2024-074254

PATIENT
  Age: 88 Year
  Sex: Male
  Weight: 61.23 kg

DRUGS (5)
  1. ELIQUIS [Suspect]
     Active Substance: APIXABAN
     Indication: Cardiac failure
     Dosage: 5 MG, 2X/DAY
  2. VYNDAMAX [Suspect]
     Active Substance: TAFAMIDIS
     Indication: Amyloidosis
     Dosage: 61 MG, 1X/DAY
     Route: 048
  3. ENTRESTO [Suspect]
     Active Substance: SACUBITRIL\VALSARTAN
  4. METOPROLOL [Concomitant]
     Active Substance: METOPROLOL
     Indication: Hypertension
     Dosage: 25 MG, 1X/DAY
  5. LASIX [Concomitant]
     Active Substance: FUROSEMIDE
     Indication: Hypertension
     Dosage: 20 MG, 1X/DAY

REACTIONS (4)
  - Cardiac failure [Fatal]
  - Bile duct stent insertion [Unknown]
  - Off label use [Unknown]
  - Confusional state [Unknown]

NARRATIVE: CASE EVENT DATE: 20240301
